FAERS Safety Report 21617920 (Version 1)
Quarter: 2022Q4

REPORT INFORMATION
  Report Type: Spontaneous
  Country: IT (occurrence: IT)
  Receive Date: 20221119
  Receipt Date: 20221119
  Transmission Date: 20230112
  Serious: Yes (Other)
  Sender: FDA-Public Use
  Company Number: IT-ROCHE-3210426

PATIENT
  Age: 64 Year
  Sex: Male
  Weight: 91 kg

DRUGS (9)
  1. BENDAMUSTINE HYDROCHLORIDE [Suspect]
     Active Substance: BENDAMUSTINE HYDROCHLORIDE
     Indication: Diffuse large B-cell lymphoma
     Dosage: (3 LINE: POLA-BR)
     Route: 042
     Dates: start: 20220818, end: 20220819
  2. OXALIPLATIN [Suspect]
     Active Substance: OXALIPLATIN
     Indication: Diffuse large B-cell lymphoma
     Dosage: (2 LINE: RGEMOX)
     Route: 065
     Dates: start: 20220525, end: 20220715
  3. GEMCITABINE [Suspect]
     Active Substance: GEMCITABINE
     Indication: Diffuse large B-cell lymphoma
     Dosage: (2 LINE: R-GEMOX)
     Route: 065
     Dates: start: 20220525, end: 20220715
  4. POLATUZUMAB VEDOTIN [Suspect]
     Active Substance: POLATUZUMAB VEDOTIN
     Indication: Diffuse large B-cell lymphoma
     Dosage: (3 LINE: POLA-BR)
     Route: 065
     Dates: start: 20220818, end: 20220819
  5. RITUXIMAB [Suspect]
     Active Substance: RITUXIMAB
     Indication: Diffuse large B-cell lymphoma
     Dosage: (1 LINE: R-CHOP)
     Route: 042
     Dates: start: 20220103, end: 20220405
  6. RITUXIMAB [Suspect]
     Active Substance: RITUXIMAB
     Dosage: (2 LINE: R-GEMOX)
     Route: 042
     Dates: start: 20220525, end: 20220715
  7. RITUXIMAB [Suspect]
     Active Substance: RITUXIMAB
     Dosage: (3 LINE: POLA-BR)
     Route: 042
     Dates: start: 20220818, end: 20220819
  8. CYTARABINE [Suspect]
     Active Substance: CYTARABINE
     Indication: Diffuse large B-cell lymphoma
     Dosage: (4 LINE: OTHER)
     Route: 065
     Dates: start: 20221013, end: 20221014
  9. CYCLOPHOSPHAMIDE\DOXORUBICIN\PREDNISONE\VINCRISTINE [Suspect]
     Active Substance: CYCLOPHOSPHAMIDE\DOXORUBICIN\PREDNISONE\VINCRISTINE
     Indication: Diffuse large B-cell lymphoma
     Dosage: (1 LINE: R-CHOP)
     Route: 065
     Dates: start: 20220103, end: 20220405

REACTIONS (3)
  - Malignant neoplasm progression [Unknown]
  - Blood lactate dehydrogenase increased [Unknown]
  - Off label use [Unknown]
